FAERS Safety Report 5640985-9 (Version None)
Quarter: 2008Q1

REPORT INFORMATION
  Report Type: 
  Country: None (occurrence: None)
  Receive Date: 20080227
  Receipt Date: 20080225
  Transmission Date: 20080703
  Serious: Yes (Other)
  Sender: FDA-Public Use
  Company Number: NL-ASTRAZENECA-2008AC00539

PATIENT
  Age: 8466 Day
  Sex: Male
  Weight: 88 kg

DRUGS (4)
  1. SEROQUEL [Suspect]
     Indication: SCHIZOPHRENIA
     Route: 048
     Dates: start: 20080122, end: 20080122
  2. SEROQUEL [Suspect]
     Route: 048
     Dates: start: 20080123, end: 20080123
  3. SEROQUEL [Suspect]
     Route: 048
     Dates: start: 20080124, end: 20080124
  4. SEROQUEL [Suspect]
     Route: 048

REACTIONS (1)
  - CIRCULATORY COLLAPSE [None]
